FAERS Safety Report 10892196 (Version 2)
Quarter: 2015Q1

REPORT INFORMATION
  Report Type: Spontaneous
  Country: IT (occurrence: IT)
  Receive Date: 20150306
  Receipt Date: 20150326
  Transmission Date: 20150721
  Serious: Yes (Other)
  Sender: FDA-Public Use
  Company Number: IT-BRISTOL-MYERS SQUIBB COMPANY-BMS-2015-012031

PATIENT
  Age: 77 Year
  Sex: Male

DRUGS (7)
  1. ORUDIS [Interacting]
     Active Substance: KETOPROFEN
     Indication: PROCEDURAL PAIN
     Dosage: 200 MG, UNK
     Route: 048
     Dates: start: 20150211, end: 20150217
  2. ORUDIS I.M.                        /00321701/ [Interacting]
     Active Substance: KETOPROFEN
     Indication: PROCEDURAL PAIN
     Dosage: 2 ML, QD
     Route: 030
     Dates: start: 20150211, end: 20150217
  3. CARDIOASPIRIN [Concomitant]
     Active Substance: ASPIRIN
     Indication: PRODUCT USED FOR UNKNOWN INDICATION
     Dosage: 100 MG, UNK
     Route: 065
  4. TOTALIP [Concomitant]
     Active Substance: ATORVASTATIN
     Indication: PRODUCT USED FOR UNKNOWN INDICATION
     Dosage: 20 MG, UNK
     Route: 065
  5. AMOXICILLIN/CLAVULANIC ACID [Interacting]
     Active Substance: AMOXICILLIN\CLAVULANIC ACID
     Indication: ANTIBIOTIC PROPHYLAXIS
     Dosage: 2 G, QD
     Route: 048
     Dates: start: 20150211, end: 20150216
  6. COUMADIN [Suspect]
     Active Substance: WARFARIN SODIUM
     Indication: CEREBROVASCULAR ACCIDENT PROPHYLAXIS
     Dosage: 22.5 MG, QWK
     Route: 048
     Dates: start: 20100302, end: 20150216
  7. CORDARONE [Concomitant]
     Active Substance: AMIODARONE HYDROCHLORIDE
     Indication: PRODUCT USED FOR UNKNOWN INDICATION
     Dosage: 200 MG, UNK
     Route: 065

REACTIONS (2)
  - Drug interaction [Unknown]
  - International normalised ratio increased [Recovered/Resolved]

NARRATIVE: CASE EVENT DATE: 20150217
